FAERS Safety Report 10149089 (Version 1)
Quarter: 2014Q2

REPORT INFORMATION
  Report Type: Spontaneous
  Country: IN (occurrence: None)
  Receive Date: 20140430
  Receipt Date: 20140430
  Transmission Date: 20141212
  Serious: Yes (Hospitalization)
  Sender: FDA-Public Use
  Company Number: ANI_2014_1365586

PATIENT
  Age: 18 Year
  Sex: Male

DRUGS (1)
  1. PHENYTOIN (NON-SPECIFIC) [Suspect]
     Indication: CONVULSION
     Route: 042

REACTIONS (5)
  - Acute generalised exanthematous pustulosis [None]
  - Cerebellar syndrome [None]
  - Toxicity to various agents [None]
  - Leukocytosis [None]
  - Renal impairment [None]
